FAERS Safety Report 4567442-5 (Version None)
Quarter: 2005Q1

REPORT INFORMATION
  Report Type: 
  Country: None (occurrence: None)
  Receive Date: 20050127
  Receipt Date: 20050114
  Transmission Date: 20050727
  Serious: Yes (Hospitalization)
  Sender: FDA-Public Use
  Company Number: 2005014116

PATIENT
  Age: 53 Year
  Sex: Female

DRUGS (4)
  1. RELPAX [Suspect]
     Indication: MIGRAINE
  2. CELEBREX [Suspect]
     Indication: MIGRAINE
  3. ROFECOXIB [Concomitant]
     Indication: MIGRAINE
  4. BETA BLOCKING AGENTS (BETA BLOCKING AGENTS) [Concomitant]

REACTIONS (4)
  - DIVERTICULITIS [None]
  - DRUG INTERACTION [None]
  - RED BLOOD CELL SEDIMENTATION RATE INCREASED [None]
  - SIGMOIDITIS [None]
